FAERS Safety Report 24344449 (Version 2)
Quarter: 2024Q3

REPORT INFORMATION
  Report Type: Spontaneous
  Country: IT (occurrence: IT)
  Receive Date: 20240920
  Receipt Date: 20240926
  Transmission Date: 20241016
  Serious: Yes (Life-Threatening, Hospitalization)
  Sender: ORGANON
  Company Number: None

PATIENT
  Age: 66 Year
  Sex: Female

DRUGS (12)
  1. EZETIMIBE [Suspect]
     Active Substance: EZETIMIBE
     Indication: Coronary artery disease
     Dosage: 10 MILLIGRAM, 1 TABLET DAILY (Q24H)
     Route: 048
     Dates: start: 20240703, end: 20240826
  2. ROSUVASTATIN [Suspect]
     Active Substance: ROSUVASTATIN\ROSUVASTATIN CALCIUM
     Indication: Coronary artery disease
     Dosage: 20 MILLIGRAM, 1 TABLET DAILY (Q24H)
     Route: 048
     Dates: start: 20240701, end: 20240826
  3. PLAVIX [Concomitant]
     Active Substance: CLOPIDOGREL BISULFATE
     Indication: Coronary artery disease
     Dosage: 75 MILLIGRAM, 1 TABLET DAILY (QD)
     Route: 048
  4. VALSARTAN [Concomitant]
     Active Substance: VALSARTAN
     Indication: Hypertension
     Dosage: 160 MILLIGRAM, 1 TABLET DAILY (QD)
     Route: 048
  5. CANRENONE [Concomitant]
     Active Substance: CANRENONE
     Indication: Cardiac failure
     Dosage: 50 MILLIGRAM, 1 TABLET DAILY (QD)
     Route: 048
  6. PRADAXA [Concomitant]
     Active Substance: DABIGATRAN ETEXILATE MESYLATE
     Indication: Atrial fibrillation
     Dosage: 110 MG 1 TABLET TWICE FOR 30 DAYS, THEN 150 MG 1 TABLET TWICE
     Route: 048
     Dates: start: 20240703
  7. PRADAXA [Concomitant]
     Active Substance: DABIGATRAN ETEXILATE MESYLATE
     Indication: Atrial fibrillation
     Dosage: THEN 150 MG 1 TABLET TWICE
     Route: 048
     Dates: start: 20240703
  8. ALLOPURINOL [Concomitant]
     Active Substance: ALLOPURINOL
     Indication: Hyperuricaemia
     Dosage: 150 MILLIGRAM, 1 TABLET DAILY (QD)
     Route: 048
  9. PANTOPRAZOLE SODIUM [Concomitant]
     Active Substance: PANTOPRAZOLE SODIUM
     Indication: Prophylaxis against gastrointestinal ulcer
     Dosage: 20 MILLIGRAM, 1 TABLET DAILY (QD)
     Route: 048
  10. FUROSEMIDE [Concomitant]
     Active Substance: FUROSEMIDE
     Indication: Cardiac failure
     Dosage: 25 MILLIGRAM, 1 TABLET X2
     Route: 048
  11. EMPAGLIFLOZIN [Concomitant]
     Active Substance: EMPAGLIFLOZIN
     Indication: Cardiac failure
     Dosage: 10 MILLIGRAM, 1 TABLET DAILY (QD)
     Route: 048
  12. ASPIRIN [Concomitant]
     Active Substance: ASPIRIN
     Indication: Coronary artery disease
     Dosage: 100 MILLIGRAM, 1 TABLET DAILY (QD)
     Route: 048

REACTIONS (2)
  - Rhabdomyolysis [Unknown]
  - Kidney infection [Unknown]

NARRATIVE: CASE EVENT DATE: 20240826
